FAERS Safety Report 7382121-7 (Version None)
Quarter: 2011Q1

REPORT INFORMATION
  Report Type: 
  Country: None (occurrence: None)
  Receive Date: 20110329
  Receipt Date: 20110318
  Transmission Date: 20110831
  Serious: Yes (Other)
  Sender: FDA-Public Use
  Company Number: US-BAXTER-2010BH026011

PATIENT
  Age: 14 Year
  Sex: Female
  Weight: 58 kg

DRUGS (53)
  1. HEPARIN SODIUM INJECTION [Suspect]
     Route: 042
     Dates: start: 20080115, end: 20080115
  2. HEPARIN SODIUM INJECTION [Suspect]
     Route: 042
  3. HEPARIN SODIUM INJECTION [Suspect]
     Route: 042
     Dates: start: 20080129, end: 20080129
  4. HEPARIN SODIUM INJECTION [Suspect]
     Route: 042
     Dates: start: 20080129, end: 20080129
  5. HYDROMORPHONE HCL [Suspect]
     Indication: PAIN
     Route: 065
     Dates: start: 20070101, end: 20070101
  6. METHADONE [Suspect]
     Indication: PRODUCT USED FOR UNKNOWN INDICATION
     Route: 065
     Dates: start: 20070101, end: 20070101
  7. NEUPOGEN [Concomitant]
     Indication: PRODUCT USED FOR UNKNOWN INDICATION
     Route: 065
  8. ZOFRAN [Concomitant]
     Indication: PRODUCT USED FOR UNKNOWN INDICATION
     Route: 065
  9. BENADRYL [Concomitant]
     Indication: PRODUCT USED FOR UNKNOWN INDICATION
     Route: 065
  10. HEPARIN SODIUM INJECTION [Suspect]
     Indication: ASPIRATION BONE MARROW
     Route: 042
     Dates: start: 20071119, end: 20071119
  11. HEPARIN SODIUM INJECTION [Suspect]
     Indication: CENTRAL VENOUS CATHETERISATION
     Route: 042
     Dates: start: 20071119, end: 20071119
  12. HEPARIN SODIUM INJECTION [Suspect]
     Route: 042
     Dates: start: 20080108, end: 20080108
  13. HEPARIN SODIUM INJECTION [Suspect]
     Route: 042
     Dates: start: 20080219, end: 20080219
  14. HEPARIN SODIUM INJECTION [Suspect]
     Route: 042
     Dates: start: 20070129, end: 20070129
  15. PEPCID [Concomitant]
     Indication: PRODUCT USED FOR UNKNOWN INDICATION
     Route: 065
  16. NARCAN [Concomitant]
     Indication: PRODUCT USED FOR UNKNOWN INDICATION
     Route: 065
  17. ATIVAN [Concomitant]
     Indication: PRODUCT USED FOR UNKNOWN INDICATION
     Route: 065
  18. HEPARIN SODIUM INJECTION [Suspect]
     Route: 042
     Dates: start: 20080103, end: 20080103
  19. HEPARIN SODIUM INJECTION [Suspect]
     Route: 042
     Dates: start: 20080212, end: 20080212
  20. LO/OVRAL [Suspect]
     Indication: MENORRHAGIA
     Route: 065
     Dates: end: 20071001
  21. LOVENOX [Concomitant]
     Indication: PRODUCT USED FOR UNKNOWN INDICATION
     Route: 065
  22. OTHER CHEMOTHERAPEUTICS [Concomitant]
     Indication: PRODUCT USED FOR UNKNOWN INDICATION
     Route: 065
  23. LABETALOL [Concomitant]
     Indication: PRODUCT USED FOR UNKNOWN INDICATION
     Route: 065
  24. HEPARIN SODIUM INJECTION [Suspect]
     Route: 042
     Dates: start: 20071221, end: 20071221
  25. HEPARIN SODIUM INJECTION [Suspect]
     Route: 042
     Dates: start: 20080103, end: 20080103
  26. HEPARIN SODIUM INJECTION [Suspect]
     Route: 042
  27. HEPARIN SODIUM INJECTION [Suspect]
     Route: 042
     Dates: start: 20080219, end: 20080219
  28. DIFLUCAN [Concomitant]
     Indication: PRODUCT USED FOR UNKNOWN INDICATION
     Route: 065
  29. NEUPOGEN [Concomitant]
     Indication: PRODUCT USED FOR UNKNOWN INDICATION
     Route: 065
  30. HEPARIN SODIUM INJECTION [Suspect]
     Route: 042
     Dates: start: 20070618
  31. HEPARIN SODIUM INJECTION [Suspect]
     Route: 042
     Dates: start: 20080115, end: 20080115
  32. HEPARIN SODIUM INJECTION [Suspect]
     Route: 042
  33. HEPARIN SODIUM INJECTION [Suspect]
     Route: 042
     Dates: start: 20070129, end: 20070129
  34. HEPARIN SODIUM INJECTION [Suspect]
     Route: 042
     Dates: start: 20080108, end: 20080108
  35. HEPARIN SODIUM INJECTION [Suspect]
     Route: 042
  36. HEPARIN SODIUM INJECTION [Suspect]
     Route: 042
     Dates: start: 20080205, end: 20080205
  37. HEPARIN SODIUM INJECTION [Suspect]
     Route: 042
     Dates: start: 20080226, end: 20080226
  38. BACTRIM [Concomitant]
     Indication: PRODUCT USED FOR UNKNOWN INDICATION
     Route: 048
  39. HEPARIN SODIUM INJECTION [Suspect]
     Route: 042
  40. HEPARIN SODIUM INJECTION [Suspect]
     Route: 042
  41. HEPARIN SODIUM INJECTION [Suspect]
     Route: 042
     Dates: start: 20080212, end: 20080212
  42. HEPARIN SODIUM INJECTION [Suspect]
     Route: 042
     Dates: start: 20080226, end: 20080226
  43. VANCOMYCIN HCL [Suspect]
     Indication: BLOOD CULTURE POSITIVE
     Route: 042
     Dates: start: 20070801, end: 20070901
  44. CLINDAMYCIN [Concomitant]
     Indication: PRODUCT USED FOR UNKNOWN INDICATION
     Route: 065
  45. CALAMINE [Concomitant]
     Indication: PRODUCT USED FOR UNKNOWN INDICATION
     Route: 065
  46. ENALAPRIL MALEATE [Concomitant]
     Indication: PRODUCT USED FOR UNKNOWN INDICATION
     Route: 065
  47. HEPARIN SODIUM INJECTION [Suspect]
     Route: 042
     Dates: start: 20071221, end: 20071221
  48. HEPARIN SODIUM INJECTION [Suspect]
     Route: 042
     Dates: start: 20070618
  49. HEPARIN SODIUM INJECTION [Suspect]
     Route: 042
     Dates: start: 20080205, end: 20080205
  50. HEPARIN SODIUM INJECTION [Suspect]
     Route: 042
     Dates: start: 20070706, end: 20070929
  51. CIPROFLOXACIN [Concomitant]
     Indication: PRODUCT USED FOR UNKNOWN INDICATION
     Route: 065
  52. MORPHINE [Concomitant]
     Indication: PRODUCT USED FOR UNKNOWN INDICATION
     Route: 065
  53. CEFTAZIDIME [Concomitant]
     Indication: PRODUCT USED FOR UNKNOWN INDICATION
     Route: 065

REACTIONS (45)
  - THROMBOCYTOPENIA [None]
  - HYPOMAGNESAEMIA [None]
  - PYREXIA [None]
  - CHILLS [None]
  - UNRESPONSIVE TO STIMULI [None]
  - THROMBOPHLEBITIS [None]
  - COUGH [None]
  - DECREASED APPETITE [None]
  - DIARRHOEA [None]
  - SUBCLAVIAN VEIN THROMBOSIS [None]
  - HAEMORRHAGE [None]
  - NEUTROPENIA [None]
  - LIVER FUNCTION TEST ABNORMAL [None]
  - HYPOTENSION [None]
  - LIP SWELLING [None]
  - FATIGUE [None]
  - MUCOSAL INFLAMMATION [None]
  - ABDOMINAL PAIN [None]
  - ACUTE MYELOID LEUKAEMIA [None]
  - AXILLARY VEIN THROMBOSIS [None]
  - HAEMATEMESIS [None]
  - RED MAN SYNDROME [None]
  - RASH [None]
  - NAUSEA [None]
  - DYSPHAGIA [None]
  - HAEMORRHAGIC DISORDER [None]
  - ANAEMIA [None]
  - PHARYNGITIS [None]
  - MENTAL STATUS CHANGES [None]
  - DYSPEPSIA [None]
  - HEADACHE [None]
  - SKIN DISCOLOURATION [None]
  - SKIN EXFOLIATION [None]
  - SEDATION [None]
  - HYPERTENSION [None]
  - PAIN [None]
  - BLOOD CULTURE POSITIVE [None]
  - BLOOD BILIRUBIN INCREASED [None]
  - MENORRHAGIA [None]
  - ANGIOEDEMA [None]
  - URINARY TRACT INFECTION [None]
  - BLOOD POTASSIUM INCREASED [None]
  - LEUKOCYTOSIS [None]
  - TACHYCARDIA [None]
  - VOMITING [None]
